FAERS Safety Report 11064408 (Version 1)
Quarter: 2015Q2

REPORT INFORMATION
  Report Type: Spontaneous
  Country: US (occurrence: US)
  Receive Date: 20150424
  Receipt Date: 20150424
  Transmission Date: 20150821
  Serious: Yes (Other)
  Sender: FDA-Public Use
  Company Number: US-PFIZER INC-2015116524

PATIENT
  Sex: Female

DRUGS (3)
  1. FOLIC ACID. [Suspect]
     Active Substance: FOLIC ACID
     Dosage: ONE A DAY
  2. ENBREL [Suspect]
     Active Substance: ETANERCEPT
     Dosage: UNK
  3. METHOTREXATE [Suspect]
     Active Substance: METHOTREXATE
     Dosage: 8 PILLS A WEEK

REACTIONS (10)
  - Hyperthyroidism [Unknown]
  - Neck pain [Unknown]
  - Urticaria [Unknown]
  - Muscle spasms [Unknown]
  - Musculoskeletal pain [Unknown]
  - Drug ineffective [Unknown]
  - Hypersensitivity [Unknown]
  - Nervous system disorder [Unknown]
  - Gastrooesophageal reflux disease [Unknown]
  - Injection site pain [Unknown]
